FAERS Safety Report 4352679-0 (Version None)
Quarter: 2004Q1

REPORT INFORMATION
  Report Type: 
  Country: None (occurrence: None)
  Receive Date: 20040329
  Receipt Date: 20040315
  Transmission Date: 20041129
  Serious: Yes (Hospitalization)
  Sender: FDA-Public Use
  Company Number: 6007989

PATIENT
  Age: 69 Year
  Sex: Female

DRUGS (3)
  1. AMIODARONE HCL [Suspect]
     Indication: ATRIAL FIBRILLATION
     Dosage: 600 MG
  2. BISOPROLOL FUMARATE [Suspect]
     Indication: TACHYARRHYTHMIA
     Dosage: 1,25 MG
  3. BETA-ACETYLDIGOXIN (BETA-ACETYLDIGOXIN) [Suspect]
     Indication: TACHYARRHYTHMIA
     Dosage: 0,1 MG

REACTIONS (10)
  - C-REACTIVE PROTEIN INCREASED [None]
  - CEREBRAL INFARCTION [None]
  - DRUG INTERACTION [None]
  - DRUG LEVEL DECREASED [None]
  - ELECTROCARDIOGRAM QT CORRECTED INTERVAL PROLONGED [None]
  - ELECTROCARDIOGRAM ST SEGMENT DEPRESSION [None]
  - ELECTROCARDIOGRAM T WAVE INVERSION [None]
  - HAEMOGLOBIN DECREASED [None]
  - SINUS BRADYCARDIA [None]
  - TORSADE DE POINTES [None]
